FAERS Safety Report 9438152 (Version 1)
Quarter: 2013Q3

REPORT INFORMATION
  Report Type: Spontaneous
  Country: US (occurrence: US)
  Receive Date: 20130802
  Receipt Date: 20130802
  Transmission Date: 20140515
  Serious: No
  Sender: FDA-Public Use
  Company Number: US-BRISTOL-MYERS SQUIBB COMPANY-16932428

PATIENT
  Age: 57 Year
  Sex: Female

DRUGS (2)
  1. SPRYCEL [Suspect]
     Indication: CHRONIC MYELOID LEUKAEMIA
     Route: 048
     Dates: start: 20120809
  2. COUMADIN [Suspect]

REACTIONS (18)
  - Rash macular [Unknown]
  - Fatigue [Not Recovered/Not Resolved]
  - Insomnia [Not Recovered/Not Resolved]
  - Skin ulcer [Unknown]
  - Weight increased [Unknown]
  - Diarrhoea [Not Recovered/Not Resolved]
  - Hypotension [Recovering/Resolving]
  - Haemorrhage [Unknown]
  - Tooth disorder [Unknown]
  - Petechiae [Unknown]
  - Vomiting [Unknown]
  - Palpitations [Unknown]
  - Flushing [Unknown]
  - Nephrolithiasis [Unknown]
  - Gastrointestinal disorder [Unknown]
  - Local swelling [Unknown]
  - Abdominal distension [Unknown]
  - Alopecia [Unknown]
